FAERS Safety Report 6517938-1 (Version None)
Quarter: 2009Q4

REPORT INFORMATION
  Report Type: 
  Country: None (occurrence: None)
  Receive Date: 20091218
  Receipt Date: 20091204
  Transmission Date: 20100525
  Serious: Yes (Other)
  Sender: FDA-Public Use
  Company Number: ACO_00604_2009

PATIENT
  Sex: Male
  Weight: 65 kg

DRUGS (2)
  1. TIZANIDINE HYDROCHLORIDE [Suspect]
     Indication: MUSCLE SPASMS
     Dosage: 6 MG QD, 12 MG FREQUENCY UNIKNOWN
     Dates: start: 20050601
  2. SIRDALUD /00740702/ (SIRDALUD - UNKNOWN INDICATION) [Suspect]
     Indication: DRUG USE FOR UNKNOWN INDICATION
     Dosage: DF

REACTIONS (2)
  - DYSURIA [None]
  - MUSCLE SPASMS [None]
